FAERS Safety Report 10146334 (Version 3)
Quarter: 2014Q2

REPORT INFORMATION
  Report Type: Spontaneous
  Country: US (occurrence: US)
  Receive Date: 20140501
  Receipt Date: 20140630
  Transmission Date: 20141212
  Serious: Yes (Hospitalization, Other)
  Sender: FDA-Public Use
  Company Number: US-BAYER-2014-059682

PATIENT
  Age: 69 Year
  Sex: Female
  Weight: 62 kg

DRUGS (2)
  1. ALEVE CAPLET [Suspect]
     Indication: ARTHRALGIA
     Dosage: 1-2 TABLETS, QD AT NIGHT
     Route: 048
     Dates: start: 201312, end: 20140225
  2. ALEVE CAPLET [Suspect]
     Indication: ARTHRITIS

REACTIONS (16)
  - Upper gastrointestinal haemorrhage [Unknown]
  - Faeces discoloured [Recovered/Resolved]
  - Haemoglobin decreased [Recovered/Resolved]
  - Haematochezia [None]
  - Arrhythmia [None]
  - Aphagia [None]
  - Drug ineffective [None]
  - Feeling abnormal [None]
  - Malaise [Not Recovered/Not Resolved]
  - Epigastric discomfort [Unknown]
  - Asthenia [Not Recovered/Not Resolved]
  - Dizziness [Not Recovered/Not Resolved]
  - Decreased appetite [Not Recovered/Not Resolved]
  - Nausea [Recovered/Resolved]
  - Weight decreased [Unknown]
  - Incorrect drug administration duration [None]
